FAERS Safety Report 13950105 (Version 1)
Quarter: 2017Q3

REPORT INFORMATION
  Report Type: Spontaneous
  Country: DE (occurrence: DE)
  Receive Date: 20170908
  Receipt Date: 20170908
  Transmission Date: 20171128
  Serious: Yes (Other)
  Sender: FDA-Public Use
  Company Number: DE-BAYER-2017-165793

PATIENT
  Age: 68 Year
  Sex: Male

DRUGS (3)
  1. XOFIGO [Suspect]
     Active Substance: RADIUM RA-223 DICHLORIDE
     Dosage: UNK
  2. XOFIGO [Suspect]
     Active Substance: RADIUM RA-223 DICHLORIDE
     Dosage: UNK
  3. XOFIGO [Suspect]
     Active Substance: RADIUM RA-223 DICHLORIDE
     Dosage: UNK

REACTIONS (5)
  - Skin discolouration [None]
  - Decreased appetite [None]
  - Adrenal insufficiency [None]
  - Skin exfoliation [None]
  - Nausea [None]

NARRATIVE: CASE EVENT DATE: 20170710
